FAERS Safety Report 7186861-4 (Version None)
Quarter: 2010Q4

REPORT INFORMATION
  Report Type: 
  Country: None (occurrence: None)
  Receive Date: 20101222
  Receipt Date: 20101217
  Transmission Date: 20110411
  Serious: Yes (Hospitalization)
  Sender: FDA-Public Use
  Company Number: B0689873A

PATIENT
  Sex: Female

DRUGS (6)
  1. ZANTAC [Suspect]
     Indication: PREMEDICATION
     Dosage: 25MG CYCLIC
     Route: 042
     Dates: start: 20101021, end: 20101021
  2. ZOPHREN [Suspect]
     Indication: PREMEDICATION
     Dosage: 8MG CYCLIC
     Route: 042
     Dates: start: 20101021, end: 20101021
  3. PACLITAXEL [Suspect]
     Dosage: 120MG CYCLIC
     Route: 042
     Dates: start: 20101021, end: 20101021
  4. CARBOPLATIN [Suspect]
     Dosage: 450MG CYCLIC
     Route: 042
     Dates: start: 20101021, end: 20101021
  5. POLARAMINE [Suspect]
     Indication: PREMEDICATION
     Dosage: 2.5MG CYCLIC
     Route: 042
     Dates: start: 20101021, end: 20101021
  6. METHYLPREDNISOLONE [Suspect]
     Indication: PREMEDICATION
     Dosage: 60MG CYCLIC
     Route: 042
     Dates: start: 20101021, end: 20101021

REACTIONS (3)
  - BRONCHOSPASM [None]
  - CHEST PAIN [None]
  - DYSPNOEA [None]
